FAERS Safety Report 23841318 (Version 2)
Quarter: 2025Q3

REPORT INFORMATION
  Report Type: Spontaneous
  Country: CA (occurrence: CA)
  Receive Date: 20240510
  Receipt Date: 20250708
  Transmission Date: 20251020
  Serious: Yes (Other)
  Sender: CHEPLAPHARM
  Company Number: CA-ROCHE-3553746

PATIENT
  Age: 71 Year
  Sex: Female

DRUGS (14)
  1. CLONAZEPAM [Suspect]
     Active Substance: CLONAZEPAM
     Indication: Product used for unknown indication
  2. RITUXIMAB [Suspect]
     Active Substance: RITUXIMAB
     Indication: Rheumatoid arthritis
     Route: 042
  3. RITUXIMAB [Suspect]
     Active Substance: RITUXIMAB
     Indication: Rheumatoid arthritis
     Route: 042
  4. BETAMETHASONE [Suspect]
     Active Substance: BETAMETHASONE
  5. METHYLPREDNISOLONE [Suspect]
     Active Substance: METHYLPREDNISOLONE
  6. ACETAMINOPHEN [Concomitant]
     Active Substance: ACETAMINOPHEN
  7. ALENDRONATE [Concomitant]
     Active Substance: ALENDRONATE SODIUM
  8. CITALOPRAM [Concomitant]
     Active Substance: CITALOPRAM
  9. DIPHENHYDRAMINE [Concomitant]
     Active Substance: DIPHENHYDRAMINE
  10. FOLIC ACID [Concomitant]
     Active Substance: FOLIC ACID
  11. LYRICA [Concomitant]
     Active Substance: PREGABALIN
  12. OMEPRAZOLE [Concomitant]
     Active Substance: OMEPRAZOLE
  13. VITAMIN D [Concomitant]
     Active Substance: VITAMIN D NOS
  14. ZOPICLONE [Concomitant]
     Active Substance: ZOPICLONE

REACTIONS (8)
  - Blood pressure systolic increased [Not Recovered/Not Resolved]
  - Chronic obstructive pulmonary disease [Not Recovered/Not Resolved]
  - Herpes zoster [Not Recovered/Not Resolved]
  - Skin infection [Not Recovered/Not Resolved]
  - Type 2 diabetes mellitus [Not Recovered/Not Resolved]
  - Haemorrhage [Not Recovered/Not Resolved]
  - Heart rate decreased [Not Recovered/Not Resolved]
  - Somnolence [Not Recovered/Not Resolved]
